FAERS Safety Report 6300550-7 (Version None)
Quarter: 2009Q3

REPORT INFORMATION
  Report Type: 
  Country: None (occurrence: None)
  Receive Date: 20090806
  Receipt Date: 20090330
  Transmission Date: 20100115
  Serious: Yes (Life-Threatening)
  Sender: FDA-Public Use
  Company Number: US-ABBOTT-09P-163-0565214-00

PATIENT
  Sex: Male
  Weight: 127.12 kg

DRUGS (5)
  1. DEPAKOTE [Suspect]
     Indication: BIPOLAR DISORDER
     Route: 048
     Dates: start: 20090329
  2. DEPAKOTE [Suspect]
     Indication: DEPRESSION
  3. DEPAKOTE [Suspect]
     Indication: ANXIETY
  4. BUPROPION XL [Concomitant]
     Indication: ANXIETY
     Route: 048
  5. BUPROPION XL [Concomitant]
     Indication: DEPRESSION

REACTIONS (1)
  - MENTAL STATUS CHANGES [None]
